FAERS Safety Report 16749648 (Version 1)
Quarter: 2019Q3

REPORT INFORMATION
  Report Type: Spontaneous
  Country: JP (occurrence: JP)
  Receive Date: 20190828
  Receipt Date: 20190828
  Transmission Date: 20191005
  Serious: Yes (Other)
  Sender: FDA-Public Use
  Company Number: JP-BAYER-2019-150684

PATIENT
  Sex: Female

DRUGS (8)
  1. MIRENA [Suspect]
     Active Substance: LEVONORGESTREL
     Indication: PREMENSTRUAL SYNDROME
  2. MIRENA [Suspect]
     Active Substance: LEVONORGESTREL
     Indication: PREMENSTRUAL SYNDROME
  3. MIRENA [Suspect]
     Active Substance: LEVONORGESTREL
     Indication: MENSTRUATION IRREGULAR
  4. MIRENA [Suspect]
     Active Substance: LEVONORGESTREL
     Indication: CONTRACEPTION
  5. MIRENA [Suspect]
     Active Substance: LEVONORGESTREL
     Indication: MENORRHAGIA
  6. MIRENA [Suspect]
     Active Substance: LEVONORGESTREL
     Indication: MENSTRUATION IRREGULAR
  7. MIRENA [Suspect]
     Active Substance: LEVONORGESTREL
     Indication: MENORRHAGIA
  8. MIRENA [Suspect]
     Active Substance: LEVONORGESTREL
     Indication: CONTRACEPTION
     Dosage: 20 MCG/24HR, CONT
     Route: 015
     Dates: start: 201905

REACTIONS (5)
  - Pregnancy with contraceptive device [None]
  - Drug ineffective [None]
  - Abortion spontaneous [None]
  - Haemorrhage in pregnancy [None]
  - Suicide attempt [None]

NARRATIVE: CASE EVENT DATE: 20190603
